FAERS Safety Report 5898564-4 (Version None)
Quarter: 2008Q3

REPORT INFORMATION
  Report Type: 
  Country: None (occurrence: None)
  Receive Date: 20080925
  Receipt Date: 20080129
  Transmission Date: 20090109
  Serious: No
  Sender: FDA-Public Use
  Company Number: A0706074A

PATIENT
  Age: 59 Year
  Sex: Female

DRUGS (4)
  1. WELLBUTRIN XL [Suspect]
     Indication: DEPRESSION
     Dosage: 150MG PER DAY
     Route: 048
     Dates: start: 20080117
  2. BUSPAR [Concomitant]
  3. KLONOPIN [Concomitant]
  4. VITAMIN TAB [Concomitant]

REACTIONS (5)
  - AGITATION [None]
  - ANOREXIA [None]
  - DISTURBANCE IN ATTENTION [None]
  - IRRITABILITY [None]
  - NERVOUSNESS [None]
